FAERS Safety Report 25445652 (Version 1)
Quarter: 2025Q2

REPORT INFORMATION
  Report Type: Report from Study
  Country: KR (occurrence: KR)
  Receive Date: 20250617
  Receipt Date: 20250617
  Transmission Date: 20250716
  Serious: Yes (Other)
  Sender: NOVARTIS
  Company Number: KR-002147023-NVSC2025KR041715

PATIENT
  Age: 49 Year
  Sex: Female

DRUGS (17)
  1. KISQALI [Suspect]
     Active Substance: RIBOCICLIB SUCCINATE
     Indication: Hormone receptor positive HER2 negative breast cancer
     Dosage: 600 MG, QD
     Route: 048
     Dates: start: 20240708, end: 20240728
  2. KISQALI [Suspect]
     Active Substance: RIBOCICLIB SUCCINATE
     Dosage: 400 MG, QD
     Route: 048
     Dates: start: 20240812, end: 20240901
  3. KISQALI [Suspect]
     Active Substance: RIBOCICLIB SUCCINATE
     Dosage: 400 MG, QD
     Route: 048
     Dates: start: 20240909, end: 20240929
  4. KISQALI [Suspect]
     Active Substance: RIBOCICLIB SUCCINATE
     Dosage: 200 MG, QD
     Route: 048
     Dates: start: 20241023, end: 20241112
  5. KISQALI [Suspect]
     Active Substance: RIBOCICLIB SUCCINATE
     Dosage: 200 MG, QD
     Route: 048
     Dates: start: 20241120, end: 20241210
  6. KISQALI [Suspect]
     Active Substance: RIBOCICLIB SUCCINATE
     Dosage: 200 MG, QD
     Route: 048
     Dates: start: 20241218, end: 20250107
  7. KISQALI [Suspect]
     Active Substance: RIBOCICLIB SUCCINATE
     Dosage: 200 MG, QD
     Route: 048
     Dates: start: 20250115, end: 20250204
  8. GOSERELIN [Concomitant]
     Active Substance: GOSERELIN
     Indication: Hormone therapy
     Dosage: 3.6 MG, QD (DEPOT)
     Route: 058
     Dates: start: 20240708, end: 20240708
  9. GOSERELIN [Concomitant]
     Active Substance: GOSERELIN
     Dosage: 3.6 MG, QD
     Route: 058
     Dates: start: 20240812, end: 20240812
  10. GOSERELIN [Concomitant]
     Active Substance: GOSERELIN
     Dosage: 3.6 MG, QD
     Route: 058
     Dates: start: 20240909, end: 20240909
  11. GOSERELIN [Concomitant]
     Active Substance: GOSERELIN
     Dosage: 3.6 MG, QD
     Route: 058
     Dates: start: 20241023, end: 20241023
  12. GOSERELIN [Concomitant]
     Active Substance: GOSERELIN
     Dosage: 3.6 MG, QD
     Route: 058
     Dates: start: 20241120, end: 20241120
  13. GOSERELIN [Concomitant]
     Active Substance: GOSERELIN
     Dosage: 3.6 MG, QD
     Route: 058
     Dates: start: 20241218, end: 20241218
  14. GOSERELIN [Concomitant]
     Active Substance: GOSERELIN
     Dosage: 3.6 MG, QD
     Route: 058
     Dates: start: 20240115, end: 20240115
  15. G cell [Concomitant]
     Indication: Prophylaxis
     Dosage: 1 DOSAGE FORM, QD (PLUS)
     Route: 048
     Dates: start: 20241023
  16. Topisol [Concomitant]
     Indication: Prophylaxis
     Route: 065
     Dates: start: 20240812
  17. Pennel [Concomitant]
     Indication: Prophylaxis
     Dosage: 3 DOSAGE FORM, QD
     Route: 048
     Dates: start: 20240812, end: 20241014

REACTIONS (3)
  - Neutropenia [Recovered/Resolved]
  - Hepatitis toxic [Recovered/Resolved]
  - Neutropenia [Recovering/Resolving]

NARRATIVE: CASE EVENT DATE: 20240812
